FAERS Safety Report 6106938-1 (Version None)
Quarter: 2009Q1

REPORT INFORMATION
  Report Type: 
  Country: None (occurrence: None)
  Receive Date: 20090305
  Receipt Date: 20090305
  Transmission Date: 20090719
  Serious: Yes (Other)
  Sender: FDA-Public Use
  Company Number: None

PATIENT
  Sex: Female

DRUGS (1)
  1. KARIVA [Suspect]
     Indication: CONTRACEPTION
     Dosage: ONCE DAILY ORAL
     Route: 048
     Dates: start: 20070810, end: 20070908

REACTIONS (3)
  - METRORRHAGIA [None]
  - NAUSEA [None]
  - VOMITING [None]
